FAERS Safety Report 6676390-6 (Version None)
Quarter: 2010Q2

REPORT INFORMATION
  Report Type: 
  Country: None (occurrence: None)
  Receive Date: 20100408
  Receipt Date: 20100329
  Transmission Date: 20101027
  Serious: Yes (Hospitalization)
  Sender: FDA-Public Use
  Company Number: 2010AC000025

PATIENT
  Age: 58 Year
  Sex: Male

DRUGS (67)
  1. DIGOXIN [Suspect]
     Dosage: 0.125 MG; QD; PO
     Route: 048
     Dates: start: 20030929, end: 20100101
  2. PENTASA [Concomitant]
  3. TYLENOL-500 [Concomitant]
  4. ZOLOFT [Concomitant]
  5. ZOCOR [Concomitant]
  6. IMDUR [Concomitant]
  7. VIOXX [Concomitant]
  8. ACCOLATE [Concomitant]
  9. ZITHROMAX [Concomitant]
  10. METOPROLOL TARTRATE [Concomitant]
  11. LOTENSIN [Concomitant]
  12. PEPCID [Concomitant]
  13. GLUCOPHAGE [Concomitant]
  14. PLAVIX [Concomitant]
  15. ADVAIR DISKUS 100/50 [Concomitant]
  16. ASPIRIN [Concomitant]
  17. XOPENEX [Concomitant]
  18. PAXIL [Concomitant]
  19. TIMENTIN [Concomitant]
  20. AMARYL [Concomitant]
  21. LEXAPRO [Concomitant]
  22. ZYDIA [Concomitant]
  23. ACCOLATE [Concomitant]
  24. ACTOS [Concomitant]
  25. CARVEDILOL [Concomitant]
  26. CEPHALEXIN [Concomitant]
  27. COMBIVENT [Concomitant]
  28. ISOSORBIDE DINITRATE [Concomitant]
  29. INSULIN [Concomitant]
  30. ATORVASTATIN [Concomitant]
  31. ZESTRIL [Concomitant]
  32. LOPRESSOR [Concomitant]
  33. NITROGLYCERIN [Concomitant]
  34. PREVACID [Concomitant]
  35. PROVIGIL [Concomitant]
  36. REQUIP [Concomitant]
  37. TRAZODONE [Concomitant]
  38. VOLTAREN [Concomitant]
  39. ZOSTRIX [Concomitant]
  40. AMPICILLIN [Concomitant]
  41. DEMEROL [Concomitant]
  42. AMBIEN [Concomitant]
  43. ZANTAC [Concomitant]
  44. PRILOSEC [Concomitant]
  45. SULFASALAZINE [Concomitant]
  46. WARFARIN SODIUM [Concomitant]
  47. ACIPHEX [Concomitant]
  48. VASOTEC [Concomitant]
  49. AVANDIA [Concomitant]
  50. LOTENSIN [Concomitant]
  51. OXYCODONE HCL AND ACETAMINOPHEN [Concomitant]
  52. NEXIUM [Concomitant]
  53. PRANDIN [Concomitant]
  54. DARVOCET [Concomitant]
  55. LEVOFLOXACIN [Concomitant]
  56. AVELOX [Concomitant]
  57. PREDNISONE [Concomitant]
  58. ASACOL [Concomitant]
  59. CLINDAMYCIN [Concomitant]
  60. HYDROCODONE BITARTRATE [Concomitant]
  61. JANUVIA [Concomitant]
  62. LORTAB [Concomitant]
  63. SINGULAIR [Concomitant]
  64. CLONAZEPAM [Concomitant]
  65. ABILIFY [Concomitant]
  66. MAGNESIUM [Concomitant]
  67. BUPROPION [Concomitant]

REACTIONS (44)
  - ABDOMINAL DISTENSION [None]
  - AORTIC VALVE SCLEROSIS [None]
  - APHASIA [None]
  - CARDIAC FAILURE CONGESTIVE [None]
  - CEREBRAL ATROPHY [None]
  - CEREBRAL ISCHAEMIA [None]
  - CEREBROVASCULAR ACCIDENT [None]
  - CHRONIC OBSTRUCTIVE PULMONARY DISEASE [None]
  - COLD SWEAT [None]
  - CONDITION AGGRAVATED [None]
  - CONFUSIONAL STATE [None]
  - CORONARY ARTERY DISEASE [None]
  - DIABETES MELLITUS INADEQUATE CONTROL [None]
  - DIABETIC NEPHROPATHY [None]
  - DIARRHOEA [None]
  - DIASTOLIC DYSFUNCTION [None]
  - DILATATION ATRIAL [None]
  - DILATATION VENTRICULAR [None]
  - ECONOMIC PROBLEM [None]
  - EMOTIONAL DISORDER [None]
  - EROSIVE DUODENITIS [None]
  - GASTROOESOPHAGEAL REFLUX DISEASE [None]
  - HEPATOSPLENOMEGALY [None]
  - HYPERTENSION [None]
  - IMPAIRED GASTRIC EMPTYING [None]
  - INJURY [None]
  - ISCHAEMIC STROKE [None]
  - LEFT VENTRICULAR HYPERTROPHY [None]
  - MEMORY IMPAIRMENT [None]
  - MITRAL VALVE INCOMPETENCE [None]
  - MITRAL VALVE SCLEROSIS [None]
  - MULTIPLE DRUG OVERDOSE INTENTIONAL [None]
  - MUSCULOSKELETAL CHEST PAIN [None]
  - MYOCARDIAL ISCHAEMIA [None]
  - PAIN [None]
  - PNEUMONIA [None]
  - PULMONARY VALVE INCOMPETENCE [None]
  - SINUS BRADYCARDIA [None]
  - SINUSITIS [None]
  - SUICIDE ATTEMPT [None]
  - TRICUSPID VALVE INCOMPETENCE [None]
  - UNEVALUABLE EVENT [None]
  - VENTRICULAR HYPOKINESIA [None]
  - WEIGHT DECREASED [None]
